FAERS Safety Report 8610635-8 (Version None)
Quarter: 2012Q3

REPORT INFORMATION
  Report Type: 
  Country: None (occurrence: None)
  Receive Date: 20120423
  Receipt Date: 20100721
  Transmission Date: 20120928
  Serious: Yes (Other)
  Sender: FDA-Public Use
  Company Number: PHHY2010US48677

PATIENT
  Age: 49 Year
  Sex: Female

DRUGS (1)
  1. FEMARA [Suspect]
     Dosage: 2.5 MG, DAILY, ORAL
     Route: 048
     Dates: start: 20100414

REACTIONS (2)
  - BIOPSY BONE [None]
  - METASTASES TO BONE [None]
